FAERS Safety Report 6556657-2 (Version None)
Quarter: 2010Q1

REPORT INFORMATION
  Report Type: 
  Country: None (occurrence: None)
  Receive Date: 20100128
  Receipt Date: 20100121
  Transmission Date: 20100710
  Serious: Yes (Death, Other)
  Sender: FDA-Public Use
  Company Number: US-CELGENEUS-163-50794-10011562

PATIENT

DRUGS (6)
  1. VIDAZA [Suspect]
     Route: 051
  2. VIDAZA [Suspect]
     Route: 058
  3. ETANERCEPT [Suspect]
     Route: 058
  4. ETANERCEPT [Suspect]
  5. RED BLOOD CELLS [Concomitant]
     Indication: DRUG USE FOR UNKNOWN INDICATION
     Route: 051
  6. GRANULOCYTE COLONY STIMULATING FACTOR [Concomitant]
     Indication: DRUG USE FOR UNKNOWN INDICATION
     Route: 065

REACTIONS (12)
  - DISEASE PROGRESSION [None]
  - ENDOCARDITIS [None]
  - HAEMORRHAGE INTRACRANIAL [None]
  - HYPOTENSION [None]
  - INFECTION [None]
  - MYALGIA [None]
  - MYOCARDIAL INFARCTION [None]
  - NEUTROPENIA [None]
  - PANCYTOPENIA [None]
  - PNEUMONIA [None]
  - SEPSIS [None]
  - THROMBOCYTOPENIA [None]
